FAERS Safety Report 17293490 (Version 1)
Quarter: 2020Q1

REPORT INFORMATION
  Report Type: Spontaneous
  Country: US (occurrence: US)
  Receive Date: 20200120
  Receipt Date: 20200120
  Transmission Date: 20200409
  Serious: Yes (Other)
  Sender: FDA-Public Use
  Company Number: None

PATIENT
  Age: 59 Year
  Sex: Female
  Weight: 78.75 kg

DRUGS (4)
  1. CALCIUM WITH VIT. B. [Concomitant]
  2. OSELTAMIVIR PHOSPHATE CAPSULES, USP (75MG) [Suspect]
     Active Substance: OSELTAMIVIR PHOSPHATE
     Indication: INFLUENZA
     Dosage: ?          QUANTITY:1 CAPSULE(S);?
     Route: 048
     Dates: start: 20200119, end: 20200119
  3. MAGNESIUM [Concomitant]
     Active Substance: MAGNESIUM
  4. MULTI VITAMIN [Concomitant]
     Active Substance: VITAMINS

REACTIONS (2)
  - Headache [None]
  - Pyrexia [None]

NARRATIVE: CASE EVENT DATE: 20200119
